FAERS Safety Report 4368211-1 (Version None)
Quarter: 2004Q2

REPORT INFORMATION
  Report Type: 
  Country: None (occurrence: None)
  Receive Date: 20040527
  Receipt Date: 20040519
  Transmission Date: 20050107
  Serious: Yes (Life-Threatening)
  Sender: FDA-Public Use
  Company Number: 2004-BP-02922NB

PATIENT
  Age: 96 Year
  Sex: Female

DRUGS (4)
  1. MICARDIS [Suspect]
     Indication: HYPERTENSION
     Dosage: 40 MG
     Route: 048
     Dates: start: 20040303, end: 20040324
  2. CELTECT (OXATOMIDE) (SIT) [Suspect]
     Indication: ECZEMA ASTEATOTIC
     Dosage: 3 G
     Route: 048
     Dates: start: 20040303, end: 20040324
  3. KAMAG G (MAGNESIUM OXIDE) (PL) [Concomitant]
  4. ADALAT CR (NIFEDIPINE) (TAD) [Concomitant]

REACTIONS (6)
  - ALANINE AMINOTRANSFERASE [None]
  - ASPARTATE AMINOTRANSFERASE [None]
  - BLOOD BILIRUBIN ABNORMAL [None]
  - JAUNDICE [None]
  - LIVER DISORDER [None]
  - PYREXIA [None]
